FAERS Safety Report 5483785-5 (Version None)
Quarter: 2007Q4

REPORT INFORMATION
  Report Type: 
  Country: None (occurrence: None)
  Receive Date: 20071010
  Receipt Date: 20070927
  Transmission Date: 20080405
  Serious: Yes (Other)
  Sender: FDA-Public Use
  Company Number: 430034M07USA

PATIENT
  Age: 60 Year
  Sex: Female
  Weight: 61.2356 kg

DRUGS (15)
  1. NOVANTRONE [Suspect]
     Indication: MULTIPLE SCLEROSIS
     Dosage: 20 MG, ONCE, INTRAVENOUS; 21 MG, ONCE, INTRAVENOUS
     Route: 042
     Dates: start: 20050509, end: 20050509
  2. NOVANTRONE [Suspect]
     Indication: MULTIPLE SCLEROSIS
     Dosage: 20 MG, ONCE, INTRAVENOUS; 21 MG, ONCE, INTRAVENOUS
     Route: 042
     Dates: start: 20050813, end: 20050813
  3. NOVANTRONE [Suspect]
     Indication: MULTIPLE SCLEROSIS
     Dosage: 20 MG, ONCE, INTRAVENOUS; 21 MG, ONCE, INTRAVENOUS
     Route: 042
     Dates: start: 20060511, end: 20060511
  4. NOVANTRONE [Suspect]
     Indication: MULTIPLE SCLEROSIS
     Dosage: 20 MG, ONCE, INTRAVENOUS; 21 MG, ONCE, INTRAVENOUS
     Route: 042
     Dates: start: 20060803, end: 20060803
  5. NOVANTRONE [Suspect]
     Indication: MULTIPLE SCLEROSIS
     Dosage: 20 MG, ONCE, INTRAVENOUS; 21 MG, ONCE, INTRAVENOUS
     Route: 042
     Dates: start: 20061109, end: 20061109
  6. NOVANTRONE [Suspect]
     Indication: MULTIPLE SCLEROSIS
     Dosage: 20 MG, ONCE, INTRAVENOUS; 21 MG, ONCE, INTRAVENOUS
     Route: 042
     Dates: start: 20070208, end: 20070208
  7. NOVANTRONE [Suspect]
     Indication: MULTIPLE SCLEROSIS
     Dosage: 20 MG, ONCE, INTRAVENOUS; 21 MG, ONCE, INTRAVENOUS
     Route: 042
     Dates: start: 20070612, end: 20070612
  8. SINEMET [Suspect]
  9. MIRAPEX [Suspect]
  10. BACLOFEN [Concomitant]
  11. BETASERON [Concomitant]
  12. TETRACYCLINE (TETRACYCLINE /00001701/) [Concomitant]
  13. CLONAZEPAM [Concomitant]
  14. FOSAMAX [Concomitant]
  15. TIZANIDINE HCL [Concomitant]

REACTIONS (1)
  - ATRIAL FIBRILLATION [None]
